FAERS Safety Report 21529255 (Version 1)
Quarter: 2022Q4

REPORT INFORMATION
  Report Type: Other
  Country: JP (occurrence: JP)
  Receive Date: 20221031
  Receipt Date: 20221031
  Transmission Date: 20230113
  Serious: Yes (Death, Other)
  Sender: FDA-Public Use
  Company Number: JP-CHUGAI-2022042652

PATIENT
  Age: 43 Year
  Sex: Male

DRUGS (1)
  1. ALECENSA [Suspect]
     Active Substance: ALECTINIB HYDROCHLORIDE
     Indication: Neuroendocrine tumour of the lung
     Dosage: UNK
     Route: 048

REACTIONS (3)
  - Disease progression [Fatal]
  - Metastases to central nervous system [Unknown]
  - Off label use [Unknown]

NARRATIVE: CASE EVENT DATE: 20210601
